FAERS Safety Report 6361625-X (Version None)
Quarter: 2009Q3

REPORT INFORMATION
  Report Type: 
  Country: None (occurrence: None)
  Receive Date: 20090915
  Receipt Date: 20090915
  Transmission Date: 20100115
  Serious: Yes (Hospitalization)
  Sender: FDA-Public Use
  Company Number: None

PATIENT
  Age: 86 Year
  Sex: Female
  Weight: 74.8 kg

DRUGS (1)
  1. AMOXICILLIN [Suspect]
     Dosage: 4 UNITS ONCE PO
     Route: 048
     Dates: start: 20090602, end: 20090602

REACTIONS (8)
  - ANTICOAGULATION DRUG LEVEL BELOW THERAPEUTIC [None]
  - ASTHENIA [None]
  - DEHYDRATION [None]
  - DISCOMFORT [None]
  - MOVEMENT DISORDER [None]
  - NAUSEA [None]
  - RETCHING [None]
  - VOMITING [None]
